FAERS Safety Report 4628294-8 (Version None)
Quarter: 2005Q2

REPORT INFORMATION
  Report Type: 
  Country: None (occurrence: None)
  Receive Date: 20050401
  Receipt Date: 20050318
  Transmission Date: 20051028
  Serious: Yes (Death)
  Sender: FDA-Public Use
  Company Number: 0500014EN0020P

PATIENT
  Age: 10 Year
  Sex: Female
  Weight: 34 kg

DRUGS (1)
  1. ONCASPAR [Suspect]
     Indication: ACUTE LYMPHOCYTIC LEUKAEMIA
     Dosage: 2775 IU IM
     Route: 030

REACTIONS (1)
  - DEATH [None]
